FAERS Safety Report 8057024-5 (Version None)
Quarter: 2012Q1

REPORT INFORMATION
  Report Type: 
  Country: None (occurrence: None)
  Receive Date: 20120119
  Receipt Date: 20120113
  Transmission Date: 20120608
  Serious: No
  Sender: FDA-Public Use
  Company Number: US-B.I. PHARMACEUTICALS,INC./RIDGEFIELD-2012-BP-00846BP

PATIENT
  Sex: Male

DRUGS (4)
  1. COUMADIN [Concomitant]
     Indication: ATRIAL FIBRILLATION
  2. CARVEDILOL [Concomitant]
     Indication: ATRIAL FIBRILLATION
  3. ALBUTEROL [Concomitant]
     Indication: CHRONIC OBSTRUCTIVE PULMONARY DISEASE
  4. SPIRIVA [Suspect]
     Indication: CHRONIC OBSTRUCTIVE PULMONARY DISEASE
     Dosage: 18 MCG
     Route: 055
     Dates: start: 20100601

REACTIONS (1)
  - DRUG INEFFECTIVE [None]
